FAERS Safety Report 5187105-5 (Version None)
Quarter: 2006Q4

REPORT INFORMATION
  Report Type: 
  Country: None (occurrence: None)
  Receive Date: 20061220
  Receipt Date: 20060927
  Transmission Date: 20070319
  Serious: No
  Sender: FDA-Public Use
  Company Number: US-AMGEN-US194940

PATIENT
  Sex: Female

DRUGS (3)
  1. ENBREL [Suspect]
     Indication: ANKYLOSING SPONDYLITIS
     Route: 058
     Dates: start: 20060710
  2. METHOTREXATE [Concomitant]
     Route: 065
     Dates: start: 20050101
  3. AZULFIDINE [Concomitant]
     Route: 065
     Dates: start: 20050101

REACTIONS (1)
  - TOOTHACHE [None]
